FAERS Safety Report 7275411-X (Version None)
Quarter: 2011Q1

REPORT INFORMATION
  Report Type: 
  Country: None (occurrence: None)
  Receive Date: 20110131
  Receipt Date: 20110117
  Transmission Date: 20110831
  Serious: Yes (Hospitalization)
  Sender: FDA-Public Use
  Company Number: IDA-00484

PATIENT
  Age: 44 Year
  Sex: Female

DRUGS (6)
  1. EQUANIL [Suspect]
     Indication: SELF-MEDICATION
     Dosage: DOSE TEXT: SINGLE ADMINISTRATION
     Dates: start: 20100704, end: 20100704
  2. EFFEXOR [Concomitant]
  3. ABILIFY [Concomitant]
  4. DEPAKOTE [Concomitant]
  5. IMOVANE (ZOPICLONE) [Concomitant]
  6. AVLOCARDYL (PROPRANOLOL) STRENGTH: 160MG [Suspect]
     Indication: SELF-MEDICATION
     Dosage: DOSE TEXT: 1600 MG SINGLE ADMINISTRATION ORAL FORMULATION: TABLET
     Dates: start: 20100704, end: 20100704

REACTIONS (2)
  - BLOOD PRESSURE DECREASED [None]
  - MULTIPLE DRUG OVERDOSE INTENTIONAL [None]
